FAERS Safety Report 19401587 (Version 2)
Quarter: 2021Q3

REPORT INFORMATION
  Report Type: Other
  Country: CA (occurrence: CA)
  Receive Date: 20210611
  Receipt Date: 20210809
  Transmission Date: 20211014
  Serious: Yes (Hospitalization, Other)
  Sender: FDA-Public Use
  Company Number: CA-APOTEX-2020AP011614

PATIENT
  Age: 71 Year
  Sex: Female

DRUGS (9)
  1. ERENUMAB AOOE [Suspect]
     Active Substance: ERENUMAB-AOOE
     Indication: MIGRAINE
     Dosage: UNK
     Route: 065
  2. AIMOVIG [Suspect]
     Active Substance: ERENUMAB-AOOE
     Indication: MIGRAINE
     Dosage: UNK (AUTO?INJECTOR)
     Route: 065
  3. ATACAND [Concomitant]
     Active Substance: CANDESARTAN CILEXETIL
     Indication: MIGRAINE
     Dosage: 16 MILLIGRAM
     Route: 048
  4. PREGABALIN. [Suspect]
     Active Substance: PREGABALIN
     Indication: MIGRAINE
     Dosage: 200 MILLIGRAM, BID
     Route: 065
  5. CANDESARTAN. [Suspect]
     Active Substance: CANDESARTAN
     Dosage: UNK
     Route: 048
  6. TOPIRAMATE. [Suspect]
     Active Substance: TOPIRAMATE
     Indication: PRODUCT USED FOR UNKNOWN INDICATION
     Dosage: 75 MILLIGRAM
     Route: 065
  7. NABILONE [Concomitant]
     Active Substance: NABILONE
     Indication: MIGRAINE
     Dosage: UNK
     Route: 065
  8. TOPAMAX [Concomitant]
     Active Substance: TOPIRAMATE
     Indication: MIGRAINE
     Dosage: 75.0 MG, UNK
     Route: 065
  9. CANDESARTAN. [Suspect]
     Active Substance: CANDESARTAN
     Indication: MIGRAINE
     Dosage: UNK
     Route: 065

REACTIONS (16)
  - Dyspnoea [Not Recovered/Not Resolved]
  - Fatigue [Not Recovered/Not Resolved]
  - Head discomfort [Not Recovered/Not Resolved]
  - Off label use [Not Recovered/Not Resolved]
  - Migraine [Not Recovered/Not Resolved]
  - Dizziness [Not Recovered/Not Resolved]
  - Headache [Not Recovered/Not Resolved]
  - Drug ineffective for unapproved indication [Not Recovered/Not Resolved]
  - Gait disturbance [Not Recovered/Not Resolved]
  - Nausea [Not Recovered/Not Resolved]
  - Kidney infection [Not Recovered/Not Resolved]
  - Disorientation [Not Recovered/Not Resolved]
  - Paraesthesia [Not Recovered/Not Resolved]
  - Balance disorder [Not Recovered/Not Resolved]
  - Cough [Not Recovered/Not Resolved]
  - Pain in extremity [Not Recovered/Not Resolved]
